FAERS Safety Report 12251599 (Version 2)
Quarter: 2016Q2

REPORT INFORMATION
  Report Type: Spontaneous
  Country: US (occurrence: US)
  Receive Date: 20160410
  Receipt Date: 20160523
  Transmission Date: 20160815
  Serious: No
  Sender: FDA-Public Use
  Company Number: US-JNJFOC-20160308623

PATIENT
  Age: 21 Year
  Sex: Male
  Weight: 74.84 kg

DRUGS (2)
  1. INVEGA SUSTENNA [Suspect]
     Active Substance: PALIPERIDONE PALMITATE
     Indication: BIPOLAR DISORDER
     Route: 030
     Dates: start: 20151225, end: 20151225
  2. INVEGA SUSTENNA [Suspect]
     Active Substance: PALIPERIDONE PALMITATE
     Indication: BIPOLAR DISORDER
     Route: 030
     Dates: start: 20151222, end: 20151225

REACTIONS (29)
  - Feeling abnormal [Recovered/Resolved]
  - Laziness [Not Recovered/Not Resolved]
  - Product use issue [Unknown]
  - Sensory disturbance [Not Recovered/Not Resolved]
  - Feeling abnormal [Not Recovered/Not Resolved]
  - Apathy [Unknown]
  - Fear [Not Recovered/Not Resolved]
  - Weight increased [Not Recovered/Not Resolved]
  - Emotional poverty [Not Recovered/Not Resolved]
  - Negative thoughts [Not Recovered/Not Resolved]
  - Cognitive disorder [Not Recovered/Not Resolved]
  - Self-injurious ideation [Unknown]
  - Fatigue [Unknown]
  - Off label use [Unknown]
  - Tobacco user [Not Recovered/Not Resolved]
  - Exercise tolerance decreased [Not Recovered/Not Resolved]
  - Depression [Not Recovered/Not Resolved]
  - Nightmare [Unknown]
  - Akathisia [Unknown]
  - Anxiety [Unknown]
  - Anhedonia [Unknown]
  - Abulia [Unknown]
  - Discomfort [Recovered/Resolved]
  - Abnormal behaviour [Recovered/Resolved]
  - Adverse drug reaction [Recovered/Resolved]
  - Restlessness [Not Recovered/Not Resolved]
  - Head discomfort [Not Recovered/Not Resolved]
  - Boredom [Not Recovered/Not Resolved]
  - Decreased interest [Not Recovered/Not Resolved]

NARRATIVE: CASE EVENT DATE: 201512
